FAERS Safety Report 7119333-3 (Version None)
Quarter: 2010Q4

REPORT INFORMATION
  Report Type: 
  Country: None (occurrence: None)
  Receive Date: 20101123
  Receipt Date: 20101112
  Transmission Date: 20110411
  Serious: Yes (Other)
  Sender: FDA-Public Use
  Company Number: ES-B.I. PHARMACEUTICALS,INC./RIDGEFIELD-2010-BP-13042YA

PATIENT
  Age: 59 Year
  Sex: Male

DRUGS (1)
  1. OMNIC OCAS ORODISPERSABLE [Suspect]
     Indication: URETHRITIS
     Dates: end: 20101111

REACTIONS (2)
  - APATHY [None]
  - DISTURBANCE IN ATTENTION [None]
